FAERS Safety Report 9301925 (Version 3)
Quarter: 2013Q3

REPORT INFORMATION
  Report Type: Spontaneous
  Country: FR (occurrence: FR)
  Receive Date: 20130521
  Receipt Date: 20130702
  Transmission Date: 20140515
  Serious: Yes (Other)
  Sender: FDA-Public Use
  Company Number: FR-PFIZER INC-2013150691

PATIENT
  Age: 53 Year
  Sex: Female
  Weight: 62 kg

DRUGS (4)
  1. LYRICA [Suspect]
     Indication: NEURALGIA
     Dosage: 100 MG, 3X/DAY
     Dates: start: 20111102
  2. LYRICA [Suspect]
     Dosage: 150 MG, UNK
  3. LAROXYL [Concomitant]
     Indication: NEUROPATHY PERIPHERAL
     Dosage: 10 MG, 2X/DAY
     Route: 048
     Dates: start: 20111101
  4. TRAMADOL [Concomitant]

REACTIONS (4)
  - Cystic lymphangioma [Unknown]
  - Arthralgia [Unknown]
  - Somnolence [Unknown]
  - Vertigo [Unknown]
